FAERS Safety Report 25429168 (Version 1)
Quarter: 2025Q2

REPORT INFORMATION
  Report Type: Spontaneous
  Country: US (occurrence: None)
  Receive Date: 20250611
  Receipt Date: 20250611
  Transmission Date: 20250717
  Serious: Yes (Hospitalization)
  Sender: FDA-CTU
  Company Number: None

PATIENT
  Age: 44 Year
  Sex: Female
  Weight: 91 kg

DRUGS (1)
  1. XOLAIR PFS [Suspect]
     Active Substance: OMALIZUMAB
     Dates: start: 20241202, end: 20250606

REACTIONS (10)
  - Urticaria [None]
  - Pruritus [None]
  - Burning sensation [None]
  - Blister [None]
  - Face oedema [None]
  - Lip swelling [None]
  - Swelling of nose [None]
  - Erythema [None]
  - Blood pressure increased [None]
  - Heart rate increased [None]

NARRATIVE: CASE EVENT DATE: 20250606
